FAERS Safety Report 14057319 (Version 1)
Quarter: 2017Q4

REPORT INFORMATION
  Report Type: Spontaneous
  Country: JP (occurrence: JP)
  Receive Date: 20171006
  Receipt Date: 20171006
  Transmission Date: 20180321
  Serious: Yes (Hospitalization)
  Sender: FDA-Public Use
  Company Number: JP-PFIZER INC-2017426181

PATIENT
  Age: 78 Year
  Sex: Male
  Weight: 74 kg

DRUGS (9)
  1. ZOPICLONE [Suspect]
     Active Substance: ZOPICLONE
     Dosage: 1 DF, 1X/DAY
     Route: 048
     Dates: end: 20170213
  2. PLETAAL [Suspect]
     Active Substance: CILOSTAZOL
     Dosage: 2 DF, 1X/DAY
     Route: 048
     Dates: end: 20170228
  3. PLAVIX [Suspect]
     Active Substance: CLOPIDOGREL BISULFATE
     Dosage: 1 DF, 1X/DAY
     Route: 048
     Dates: start: 20170301
  4. GRIMAC [Concomitant]
     Route: 048
  5. ATORVASTATIN CALCIUM. [Suspect]
     Active Substance: ATORVASTATIN CALCIUM
     Dosage: 2 DF, 1X/DAY
     Route: 048
  6. ZETIA [Suspect]
     Active Substance: EZETIMIBE
     Dosage: 10 MG, 1X/DAY
     Route: 048
     Dates: end: 20170213
  7. AMLODIPINE BESILATE [Suspect]
     Active Substance: AMLODIPINE BESYLATE
     Dosage: 1 DF, 1X/DAY
     Route: 048
  8. PRANLUKAST HYDRATE [Suspect]
     Active Substance: PRANLUKAST HEMIHYDRATE
     Dosage: UNK
     Route: 048
     Dates: end: 20170213
  9. METGLUCO [Suspect]
     Active Substance: METFORMIN HYDROCHLORIDE
     Dosage: 1 DF, 1X/DAY
     Route: 048

REACTIONS (3)
  - Oedema peripheral [None]
  - Dermatitis exfoliative [Not Recovered/Not Resolved]
  - Proteinuria [None]

NARRATIVE: CASE EVENT DATE: 201701
